FAERS Safety Report 6895979-2 (Version None)
Quarter: 2010Q3

REPORT INFORMATION
  Report Type: 
  Country: None (occurrence: None)
  Receive Date: 20100728
  Receipt Date: 20100719
  Transmission Date: 20110219
  Serious: Yes (Other)
  Sender: FDA-Public Use
  Company Number: TPA2010A04124

PATIENT
  Age: 74 Year
  Sex: Female

DRUGS (6)
  1. ACTOS [Suspect]
     Indication: TYPE 2 DIABETES MELLITUS
     Dosage: 30 MG, 1 IN 1 D, PER ORAL
     Route: 048
     Dates: start: 20091201
  2. LIPITOR (ATORVASTATIN0 [Concomitant]
  3. ATENOLOL [Concomitant]
  4. TRICOR [Concomitant]
  5. BENICAR HCT [Concomitant]
  6. CACLIUM WITH VITAMIN D (ERGOCALCIFEROL, CALCIUM PHOSPHATE, CALCIUM SOD [Concomitant]

REACTIONS (6)
  - DYSGEUSIA [None]
  - DYSPNOEA [None]
  - HEADACHE [None]
  - MUSCULOSKELETAL PAIN [None]
  - SPINAL FRACTURE [None]
  - WEIGHT INCREASED [None]
